FAERS Safety Report 10181615 (Version 3)
Quarter: 2016Q4

REPORT INFORMATION
  Report Type: Spontaneous
  Country: US (occurrence: US)
  Receive Date: 20140519
  Receipt Date: 20161221
  Transmission Date: 20170206
  Serious: Yes (Other)
  Sender: FDA-Public Use
  Company Number: US-PFIZER INC-2014133889

PATIENT
  Age: 55 Year
  Sex: Female
  Weight: 70 kg

DRUGS (1)
  1. PREMARIN [Suspect]
     Active Substance: ESTROGENS, CONJUGATED
     Indication: VULVOVAGINAL DRYNESS
     Dosage: UNK
     Route: 067
     Dates: start: 20140510, end: 20140510

REACTIONS (3)
  - Vulvovaginal discomfort [Not Recovered/Not Resolved]
  - Urinary tract infection [Not Recovered/Not Resolved]
  - Vulvovaginal erythema [Not Recovered/Not Resolved]

NARRATIVE: CASE EVENT DATE: 20140510
